FAERS Safety Report 14682355 (Version 1)
Quarter: 2018Q1

REPORT INFORMATION
  Report Type: Spontaneous
  Country: FR (occurrence: FR)
  Receive Date: 20180326
  Receipt Date: 20180326
  Transmission Date: 20180509
  Serious: Yes (Other)
  Sender: FDA-Public Use
  Company Number: FR-MERCK KGAA-2044569

PATIENT
  Age: 47 Year
  Sex: Female

DRUGS (2)
  1. NOVOTHYROX [Suspect]
     Active Substance: LEVOTHYROXINE SODIUM
     Indication: PRODUCT USED FOR UNKNOWN INDICATION
     Dates: start: 201708
  2. NOVOTHYROX [Suspect]
     Active Substance: LEVOTHYROXINE SODIUM
     Dates: start: 20171228

REACTIONS (26)
  - General physical health deterioration [Recovered/Resolved]
  - Asthenia [Recovered/Resolved]
  - Hyperthyroidism [Recovered/Resolved]
  - Myalgia [Recovered/Resolved]
  - Arthralgia [Recovered/Resolved]
  - Insomnia [Recovered/Resolved]
  - Psychomotor retardation [Recovered/Resolved]
  - Personal relationship issue [Recovered/Resolved]
  - Anger [Recovered/Resolved]
  - Loss of personal independence in daily activities [Recovered/Resolved]
  - Fatigue [Recovered/Resolved]
  - Mental fatigue [Recovered/Resolved]
  - Frustration tolerance decreased [Recovered/Resolved]
  - Social avoidant behaviour [Recovered/Resolved]
  - Crying [Recovered/Resolved]
  - Amnesia [Recovered/Resolved]
  - Affect lability [Recovered/Resolved]
  - Tendonitis [Recovered/Resolved]
  - Decreased appetite [Recovered/Resolved]
  - Hypothyroidism [Recovered/Resolved]
  - Alopecia [Recovered/Resolved]
  - Hyperaesthesia [Recovered/Resolved]
  - Dizziness [Recovered/Resolved]
  - Constipation [Not Recovered/Not Resolved]
  - Disturbance in attention [Recovered/Resolved]
  - Road traffic accident [None]

NARRATIVE: CASE EVENT DATE: 20170916
